FAERS Safety Report 8283859-X (Version None)
Quarter: 2012Q2

REPORT INFORMATION
  Report Type: 
  Country: None (occurrence: None)
  Receive Date: 20120413
  Receipt Date: 20111206
  Transmission Date: 20120825
  Serious: No
  Sender: FDA-Public Use
  Company Number: US-ASTRAZENECA-2011SE74210

PATIENT
  Age: 90 Year
  Sex: Female

DRUGS (1)
  1. NEXIUM [Suspect]
     Indication: HIATUS HERNIA
     Route: 048

REACTIONS (5)
  - DRUG DOSE OMISSION [None]
  - MEMORY IMPAIRMENT [None]
  - DYSPHAGIA [None]
  - OFF LABEL USE [None]
  - VOMITING [None]
